FAERS Safety Report 8211218-4 (Version None)
Quarter: 2012Q1

REPORT INFORMATION
  Report Type: 
  Country: None (occurrence: None)
  Receive Date: 20120315
  Receipt Date: 20120307
  Transmission Date: 20120608
  Serious: Yes (Hospitalization)
  Sender: FDA-Public Use
  Company Number: US-SANOFI-AVENTIS-2012SA012736

PATIENT
  Age: 67 Year
  Sex: Female
  Weight: 84.54 kg

DRUGS (6)
  1. RAMIPRIL [Concomitant]
     Indication: PROPHYLAXIS
     Dates: start: 20100101
  2. WARFARIN SODIUM [Concomitant]
  3. CRESTOR [Concomitant]
     Dates: start: 20090101
  4. LORAZEPAM [Concomitant]
     Indication: SLEEP DISORDER
     Dates: start: 20100101
  5. LEVOTHYROXINE SODIUM [Concomitant]
     Indication: THYROID DISORDER
     Dates: start: 19990101
  6. APIDRA [Suspect]
     Route: 065
     Dates: end: 20120201

REACTIONS (6)
  - LOWER LIMB FRACTURE [None]
  - PULMONARY EMBOLISM [None]
  - BLOOD GLUCOSE FLUCTUATION [None]
  - COAGULATION TIME PROLONGED [None]
  - PYELONEPHRITIS [None]
  - URETHRITIS [None]
